FAERS Safety Report 12885273 (Version 2)
Quarter: 2016Q4

REPORT INFORMATION
  Report Type: Spontaneous
  Country: JP (occurrence: JP)
  Receive Date: 20161026
  Receipt Date: 20161108
  Transmission Date: 20170207
  Serious: Yes (Other)
  Sender: FDA-Public Use
  Company Number: JP-PFIZER INC-2016493687

PATIENT
  Age: 65 Year
  Sex: Male

DRUGS (1)
  1. ARGATROBAN. [Suspect]
     Active Substance: ARGATROBAN
     Indication: ILIAC ARTERY OCCLUSION
     Dosage: UNK
     Route: 041

REACTIONS (1)
  - Cardiac failure [Recovering/Resolving]
